FAERS Safety Report 10362459 (Version 2)
Quarter: 2014Q3

REPORT INFORMATION
  Report Type: Spontaneous
  Country: US (occurrence: None)
  Receive Date: 20140724
  Receipt Date: 20140806
  Transmission Date: 20150326
  Serious: Yes (Other)
  Sender: FDA-Public Use
  Company Number: ADR-2014-00798

PATIENT
  Age: 38 Year
  Sex: Female

DRUGS (8)
  1. KETAMINE [Suspect]
     Active Substance: KETAMINE
     Indication: CANCER PAIN
  2. DROPERIDOL. [Suspect]
     Active Substance: DROPERIDOL
     Dosage: 139.95 MCG/DAY
  3. BACLOFEN. [Suspect]
     Active Substance: BACLOFEN
     Indication: CANCER PAIN
  4. DILAUDID [Suspect]
     Active Substance: HYDROMORPHONE HYDROCHLORIDE
     Dosage: 1996MG/DAY
  5. KETAMINE [Suspect]
     Active Substance: KETAMINE
     Indication: BREAST PAIN
  6. BACLOFEN. [Suspect]
     Active Substance: BACLOFEN
     Indication: BREAST PAIN
  7. BUPIVACAINE [Suspect]
     Active Substance: BUPIVACAINE
     Dosage: MG/DAY
  8. CLONIDINE. [Suspect]
     Active Substance: CLONIDINE
     Dosage: 119.96MCG/DAY

REACTIONS (10)
  - Pain [None]
  - Catheter site fibrosis [None]
  - Inadequate analgesia [None]
  - Urinary retention [None]
  - Device occlusion [None]
  - Device kink [None]
  - Toxicity to various agents [None]
  - Dyspnoea [None]
  - Insomnia [None]
  - Pruritus [None]

NARRATIVE: CASE EVENT DATE: 20140421
